FAERS Safety Report 7741293-2 (Version None)
Quarter: 2011Q3

REPORT INFORMATION
  Report Type: 
  Country: None (occurrence: None)
  Receive Date: 20110909
  Receipt Date: 20110906
  Transmission Date: 20111222
  Serious: Yes (Hospitalization, Other)
  Sender: FDA-Public Use
  Company Number: US-ELI_LILLY_AND_COMPANY-US201001002915

PATIENT
  Sex: Male
  Weight: 95.238 kg

DRUGS (14)
  1. ALTACE [Concomitant]
     Dosage: 5 MG, DAILY (1/D)
  2. BYETTA [Suspect]
     Indication: TYPE 2 DIABETES MELLITUS
     Dosage: 5 UG, BID
     Route: 058
     Dates: start: 20070601, end: 20070901
  3. GLYBURIDE [Concomitant]
     Dosage: 2.5 MG, EACH EVENING
  4. MULTI-VITAMIN [Concomitant]
     Dosage: UNK, DAILY (1/D)
  5. PLAVIX [Concomitant]
     Dosage: 75 MG, DAILY (1/D)
  6. RANEXA [Concomitant]
     Dosage: 500 MG, 2/D
  7. ACTOS /SCH/ [Concomitant]
     Dosage: 30 MG, DAILY (1/D)
  8. LASIX [Concomitant]
     Dosage: 20 MG, DAILY (1/D)
  9. TRICOR [Concomitant]
     Dosage: 145 MG, QD
     Route: 048
     Dates: start: 20071101
  10. NITROGLYCERIN [Concomitant]
     Dosage: UNK, AS NEEDED
     Route: 060
  11. VYTORIN [Concomitant]
     Dosage: UNK, DAILY (1/D)
  12. KLOR-CON [Concomitant]
     Dosage: 10 MEQ, DAILY (1/D)
  13. GLYBURIDE [Concomitant]
     Dosage: 2.5 MG, EACH MORNING
  14. JANUVIA [Concomitant]
     Dosage: 100 MG, DAILY (1/D)
     Route: 048

REACTIONS (4)
  - ABDOMINAL DISTENSION [None]
  - PANCREATITIS ACUTE [None]
  - DECREASED APPETITE [None]
  - BLOOD GLUCOSE INCREASED [None]
